FAERS Safety Report 18205391 (Version 2)
Quarter: 2020Q3

REPORT INFORMATION
  Report Type: Spontaneous
  Country: TR (occurrence: TR)
  Receive Date: 20200828
  Receipt Date: 20200926
  Transmission Date: 20201103
  Serious: Yes (Hospitalization, Other)
  Sender: FDA-Public Use
  Company Number: TR-SCIEGEN-2020SCILIT00235

PATIENT
  Age: 76 Year
  Sex: Female

DRUGS (2)
  1. CLOPIDOGREL [Suspect]
     Active Substance: CLOPIDOGREL BISULFATE
     Indication: ABDOMINAL WALL HAEMATOMA
     Route: 065
  2. HEPARIN [Suspect]
     Active Substance: HEPARIN SODIUM
     Indication: ABDOMINAL WALL HAEMATOMA
     Route: 065

REACTIONS (2)
  - Abdominal pain [Recovered/Resolved]
  - Abdominal mass [Recovered/Resolved]
